FAERS Safety Report 7276895-3 (Version None)
Quarter: 2011Q1

REPORT INFORMATION
  Report Type: 
  Country: None (occurrence: None)
  Receive Date: 20110207
  Receipt Date: 20110124
  Transmission Date: 20110831
  Serious: No
  Sender: FDA-Public Use
  Company Number: US-BIOGENIDEC-2010BI037389

PATIENT
  Sex: Female

DRUGS (2)
  1. TYSABRI [Suspect]
     Indication: MULTIPLE SCLEROSIS
     Route: 042
     Dates: start: 20080430, end: 20090520
  2. TYSABRI [Suspect]
     Route: 042
     Dates: start: 20100429, end: 20100823

REACTIONS (4)
  - ASTHENIA [None]
  - FATIGUE [None]
  - ANTIBODY TEST POSITIVE [None]
  - DRUG SPECIFIC ANTIBODY PRESENT [None]
